FAERS Safety Report 8556120-3 (Version None)
Quarter: 2012Q3

REPORT INFORMATION
  Report Type: 
  Country: None (occurrence: None)
  Receive Date: 20120719
  Receipt Date: 20120705
  Transmission Date: 20120928
  Serious: Yes (Hospitalization, Other)
  Sender: FDA-Public Use
  Company Number: 2012000173

PATIENT
  Age: 49 Year
  Sex: Female

DRUGS (5)
  1. ACEON [Suspect]
     Indication: HYPERTENSION
  2. LEVOTHYROXINE SODIUM [Concomitant]
  3. LITHIUM CARBONATE [Suspect]
     Indication: BIPOLAR DISORDER
     Dosage: 1200 MG, QD, ORAL, 900 MG, QD, ORAL
     Route: 048
  4. QUETIAPINE FUMARATE [Concomitant]
  5. LAMOTNGINE (LAMOTNGINE) [Concomitant]

REACTIONS (13)
  - CHILLS [None]
  - BLOOD UREA INCREASED [None]
  - DRUG INTERACTION [None]
  - PSYCHOMOTOR HYPERACTIVITY [None]
  - HAEMOGLOBIN DECREASED [None]
  - ANTIPSYCHOTIC DRUG LEVEL INCREASED [None]
  - HAEMATOCRIT DECREASED [None]
  - SOMNOLENCE [None]
  - FATIGUE [None]
  - PALPITATIONS [None]
  - DIZZINESS [None]
  - ASTHENIA [None]
  - TREMOR [None]
